FAERS Safety Report 7493007-1 (Version None)
Quarter: 2011Q2

REPORT INFORMATION
  Report Type: 
  Country: None (occurrence: None)
  Receive Date: 20110511
  Receipt Date: 20110503
  Transmission Date: 20111010
  Serious: Yes (Other)
  Sender: FDA-Public Use
  Company Number: 2011SP019555

PATIENT
  Age: 61 Year
  Sex: Female

DRUGS (5)
  1. DESLORATADINE [Suspect]
     Indication: SEASONAL ALLERGY
     Dosage: 5 MG, QD
     Dates: start: 20060101, end: 20110429
  2. RHINOCORT [Concomitant]
  3. PULMICORT [Concomitant]
  4. INDIVINA [Concomitant]
  5. ARTROX [Concomitant]

REACTIONS (3)
  - PALPITATIONS [None]
  - CARDIAC ARREST [None]
  - DIZZINESS [None]
